FAERS Safety Report 12474071 (Version 3)
Quarter: 2016Q2

REPORT INFORMATION
  Report Type: Spontaneous
  Country: FR (occurrence: FR)
  Receive Date: 20160616
  Receipt Date: 20160624
  Transmission Date: 20160815
  Serious: Yes (Other)
  Sender: FDA-Public Use
  Company Number: FR-ASTRAZENECA-2016SE62158

PATIENT
  Age: 896 Month
  Sex: Female

DRUGS (1)
  1. ARIMIDEX [Suspect]
     Active Substance: ANASTROZOLE
     Indication: BREAST CANCER FEMALE
     Route: 048
     Dates: start: 201111, end: 201511

REACTIONS (4)
  - Facial neuralgia [Recovered/Resolved]
  - Toothache [Recovered/Resolved]
  - Tongue disorder [Unknown]
  - Soft tissue infection [Unknown]

NARRATIVE: CASE EVENT DATE: 201201
